FAERS Safety Report 6424450-7 (Version None)
Quarter: 2009Q4

REPORT INFORMATION
  Report Type: 
  Country: None (occurrence: None)
  Receive Date: 20091103
  Receipt Date: 20091023
  Transmission Date: 20100525
  Serious: Yes (Other)
  Sender: FDA-Public Use
  Company Number: US-BRISTOL-MYERS SQUIBB COMPANY-14839302

PATIENT
  Age: 58 Year
  Sex: Male

DRUGS (2)
  1. AMPHOTERICIN B [Suspect]
     Indication: ANTIFUNGAL PROPHYLAXIS
     Route: 055
  2. VORICONAZOLE [Suspect]
     Indication: ANTIFUNGAL PROPHYLAXIS
     Route: 048

REACTIONS (1)
  - ZYGOMYCOSIS [None]
